FAERS Safety Report 10237700 (Version 2)
Quarter: 2014Q2

REPORT INFORMATION
  Report Type: Spontaneous
  Country: CO (occurrence: CO)
  Receive Date: 20140616
  Receipt Date: 20140616
  Transmission Date: 20141212
  Serious: Yes (Other)
  Sender: FDA-Public Use
  Company Number: CO-AMGEN INC.-COLSP2013031350

PATIENT
  Age: 51 Year
  Sex: Female

DRUGS (9)
  1. ENBREL [Suspect]
     Indication: RHEUMATOID ARTHRITIS
     Dosage: 50 MG, WEEKLY
     Route: 058
     Dates: start: 2011
  2. NAPROXEN [Concomitant]
     Indication: ARTHRITIS
     Dosage: 1 TABLET EVERY 8 HRS
     Route: 048
     Dates: start: 2011
  3. NAPROXEN [Concomitant]
     Indication: BONE PAIN
  4. FOLIC ACID [Concomitant]
     Dosage: UNK, ONCE A DAY
     Route: 048
     Dates: start: 201209
  5. OMEPRAZOL                          /00661201/ [Concomitant]
     Indication: GASTRIC ULCER
     Dosage: UNK (ONCE A DAY )
     Route: 048
  6. MYLANTA                            /00036701/ [Concomitant]
     Indication: GASTRIC ULCER
     Dosage: UNK (ONCE A DAY)
     Route: 048
  7. METHOTREXATE [Concomitant]
     Indication: RHEUMATOID ARTHRITIS
     Dosage: 3 TABLETS AT MORNING AND 3 TABLETS AT NIGHT EVERY 8 HRS
     Route: 048
     Dates: start: 2011
  8. SULFADIAZINE [Concomitant]
     Dosage: UNK
  9. ACETAMINOPHEN [Concomitant]
     Dosage: UNK

REACTIONS (11)
  - Obesity [Unknown]
  - Pruritus [Not Recovered/Not Resolved]
  - Arthralgia [Not Recovered/Not Resolved]
  - Nodule [Unknown]
  - Joint dislocation [Recovering/Resolving]
  - Skin ulcer [Recovering/Resolving]
  - Pruritus generalised [Recovering/Resolving]
  - Rash generalised [Recovering/Resolving]
  - Injection site bruising [Recovered/Resolved]
  - Injection site swelling [Recovered/Resolved]
  - Injection site haemorrhage [Recovered/Resolved]
